FAERS Safety Report 4887527-3 (Version None)
Quarter: 2006Q1

REPORT INFORMATION
  Report Type: 
  Country: None (occurrence: None)
  Receive Date: 20060118
  Receipt Date: 20060105
  Transmission Date: 20060701
  Serious: Yes (Other)
  Sender: FDA-Public Use
  Company Number: 2006007414

PATIENT
  Age: 16 Year
  Sex: Male

DRUGS (2)
  1. ZYRTEC [Suspect]
     Indication: DERMATITIS ATOPIC
     Dosage: 10 MG (DAILY), ORAL
     Route: 048
     Dates: end: 20060103
  2. MINOCYCLINE HCL [Concomitant]

REACTIONS (3)
  - HEPATIC STEATOSIS [None]
  - PYREXIA [None]
  - SPLENOMEGALY [None]
